FAERS Safety Report 5159423-8 (Version None)
Quarter: 2006Q4

REPORT INFORMATION
  Report Type: 
  Country: None (occurrence: None)
  Receive Date: 20061122
  Receipt Date: 20061122
  Transmission Date: 20070319
  Serious: Yes (Hospitalization)
  Sender: FDA-Public Use
  Company Number: None

PATIENT
  Age: 73 Year
  Sex: Male

DRUGS (2)
  1. BACTRIM [Suspect]
     Dosage: 1 TABLET BID PO
     Route: 048
     Dates: start: 20060720, end: 20060726
  2. HYDROCHLOROTHIAZIDE [Suspect]
     Dosage: 1 TABLET DAILY PO
     Route: 048
     Dates: start: 20060709, end: 20060726

REACTIONS (1)
  - THROMBOCYTOPENIA [None]
